FAERS Safety Report 7121453-4 (Version None)
Quarter: 2010Q4

REPORT INFORMATION
  Report Type: 
  Country: None (occurrence: None)
  Receive Date: 20101124
  Receipt Date: 20101115
  Transmission Date: 20110411
  Serious: Yes (Other)
  Sender: FDA-Public Use
  Company Number: CHPA2010US17965

PATIENT
  Age: 72 Year
  Sex: Male
  Weight: 72.562 kg

DRUGS (1)
  1. TRANSDERM SCOP [Suspect]
     Indication: MOTION SICKNESS
     Dosage: 1 PATCH FOR 3 DAYS
     Route: 062
     Dates: start: 20100722, end: 20100701

REACTIONS (5)
  - DIZZINESS [None]
  - EAR TUBE INSERTION [None]
  - GAIT DISTURBANCE [None]
  - LABYRINTHITIS [None]
  - SINUSITIS [None]
